FAERS Safety Report 9932291 (Version 1)
Quarter: 2014Q1

REPORT INFORMATION
  Report Type: Spontaneous
  Country: US (occurrence: None)
  Receive Date: 20140227
  Receipt Date: 20140227
  Transmission Date: 20141002
  Serious: Yes (Life-Threatening)
  Sender: FDA-Public Use
  Company Number: None

PATIENT
  Age: 72 Year
  Sex: Male
  Weight: 65.8 kg

DRUGS (1)
  1. CELECOXIB [Suspect]
     Route: 048
     Dates: start: 20140214, end: 20140218

REACTIONS (1)
  - Acute myocardial infarction [None]
